FAERS Safety Report 10004535 (Version 2)
Quarter: 2014Q2

REPORT INFORMATION
  Report Type: Spontaneous
  Country: US (occurrence: US)
  Receive Date: 20140312
  Receipt Date: 20140411
  Transmission Date: 20141212
  Serious: Yes (Other)
  Sender: FDA-Public Use
  Company Number: US-PFIZER INC-2014068346

PATIENT
  Sex: Female

DRUGS (2)
  1. XANAX [Suspect]
     Indication: PREOPERATIVE CARE
     Dosage: UNK
  2. XANAX [Suspect]
     Indication: RELAXATION THERAPY
     Dosage: UNK

REACTIONS (3)
  - Coeliac disease [Unknown]
  - Malaise [Unknown]
  - Intentional product misuse [Unknown]
